FAERS Safety Report 8790762 (Version 2)
Quarter: 2012Q4

REPORT INFORMATION
  Report Type: Spontaneous
  Country: FR (occurrence: None)
  Receive Date: 20120907
  Receipt Date: 20121127
  Transmission Date: 20130627
  Serious: No
  Sender: FDA-Public Use
  Company Number: 2012-2534

PATIENT
  Age: 37 Year
  Sex: Female
  Weight: 70 kg

DRUGS (4)
  1. SOMATULINE L. P. 120MG (LANREOTIDE AUTOGEL) (LANREOTIDE) (LANREOTIDE ACETATE_ [Suspect]
     Indication: PITUITARY TUMOUR
     Dosage: 120 mg (120 mg, 1 in 5 wk), subcutaneous
     Route: 058
     Dates: start: 2004
  2. SOMATULINE L. P. 120MG (LANREOTIDE AUTOGEL) (LANREOTIDE) (LANREOTIDE ACETATE_ [Suspect]
     Indication: PITUITARY TUMOUR
  3. MICARDIS PLUS (PRITOR /01506701/) [Concomitant]
  4. EMLA PATCH (EMLAPATCH) [Concomitant]

REACTIONS (4)
  - Drug effect decreased [None]
  - Injection site pain [None]
  - Injection site induration [None]
  - Insulin-like growth factor increased [None]
